FAERS Safety Report 4308178-5 (Version None)
Quarter: 2004Q1

REPORT INFORMATION
  Report Type: 
  Country: None (occurrence: None)
  Receive Date: 20040301
  Receipt Date: 20030725
  Transmission Date: 20041129
  Serious: No
  Sender: FDA-Public Use
  Company Number: US-BRISTOL-MYERS SQUIBB COMPANY-12335527

PATIENT
  Age: 80 Year
  Sex: Male
  Weight: 93 kg

DRUGS (8)
  1. GLUCOPHAGE [Suspect]
     Indication: DIABETES MELLITUS
     Dosage: DURATION OF THERAPY:  ^6-7 YEARS^
     Route: 048
  2. NORVASC [Concomitant]
  3. PROZAC [Concomitant]
  4. VITAMIN E [Concomitant]
  5. VITAMIN B COMPLEX CAP [Concomitant]
  6. ASPIRIN [Concomitant]
  7. NAPROXEN [Concomitant]
  8. TYLENOL (CAPLET) [Concomitant]

REACTIONS (1)
  - URINE ODOUR ABNORMAL [None]
